FAERS Safety Report 17823324 (Version 5)
Quarter: 2020Q3

REPORT INFORMATION
  Report Type: Report from Study
  Country: ES (occurrence: ES)
  Receive Date: 20200526
  Receipt Date: 20200910
  Transmission Date: 20201102
  Serious: Yes (Hospitalization)
  Sender: FDA-Public Use
  Company Number: NVSC2020ES028429

PATIENT
  Age: 61 Year
  Sex: Male
  Weight: 95.4 kg

DRUGS (12)
  1. RITUXIMAB. [Suspect]
     Active Substance: RITUXIMAB
     Indication: NON-HODGKIN^S LYMPHOMA
     Dosage: 375 UNK, ONCE/SINGLE
     Route: 042
     Dates: start: 20200114
  2. FLUDARABINE [Concomitant]
     Active Substance: FLUDARABINE PHOSPHATE
     Indication: CHEMOTHERAPY
     Dosage: 25 MG/M2, QD
     Route: 065
     Dates: start: 20200604, end: 20200606
  3. BENADON [Concomitant]
     Active Substance: PYRIDOXINE HYDROCHLORIDE
     Indication: PROPHYLAXIS
     Dosage: UNK
     Route: 065
     Dates: start: 20200108
  4. DEXAMETHASONE. [Suspect]
     Active Substance: DEXAMETHASONE
     Indication: NON-HODGKIN^S LYMPHOMA
     Dosage: 40 UNK, QD
     Route: 048
     Dates: start: 20200114
  5. CISPLATIN. [Suspect]
     Active Substance: CISPLATIN
     Indication: NON-HODGKIN^S LYMPHOMA
     Dosage: 75 UNK, ONCE/SINGLE
     Route: 042
     Dates: start: 20200114
  6. CYCLOPHOSPHAMIDE. [Concomitant]
     Active Substance: CYCLOPHOSPHAMIDE
     Indication: CHEMOTHERAPY
     Dosage: 250 MG/M2, QD
     Route: 065
     Dates: start: 20200604, end: 20200606
  7. ALOPURINOL [Concomitant]
     Active Substance: ALLOPURINOL
     Indication: PROPHYLAXIS
     Dosage: UNK
     Route: 065
     Dates: start: 20200108, end: 20200220
  8. ONDANSETRON [Concomitant]
     Active Substance: ONDANSETRON
     Indication: PROPHYLAXIS OF NAUSEA AND VOMITING
     Dosage: UNK
     Route: 065
     Dates: start: 20200113
  9. G?CSF [Concomitant]
     Active Substance: GRANULOCYTE COLONY-STIMULATING FACTOR NOS
     Indication: NEUTROPENIA
     Dosage: UNK
     Route: 065
     Dates: start: 20200122, end: 20200127
  10. GEMCITABINE. [Suspect]
     Active Substance: GEMCITABINE
     Indication: NON-HODGKIN^S LYMPHOMA
     Dosage: 2.24 UNK, QW
     Route: 042
     Dates: start: 20200114, end: 20200121
  11. MAGNOGENE [Concomitant]
     Indication: GENERAL PHYSICAL CONDITION
     Dosage: UNK
     Route: 065
     Dates: start: 20200113, end: 20200117
  12. ENTECAVIR. [Concomitant]
     Active Substance: ENTECAVIR
     Indication: PROPHYLAXIS
     Dosage: UNK
     Route: 065
     Dates: start: 20200120

REACTIONS (3)
  - Headache [Recovered/Resolved]
  - Dysarthria [Recovered/Resolved]
  - Neurotoxicity [Recovered/Resolved]

NARRATIVE: CASE EVENT DATE: 20200119
